FAERS Safety Report 6074075-0 (Version None)
Quarter: 2009Q1

REPORT INFORMATION
  Report Type: 
  Country: None (occurrence: None)
  Receive Date: 20090211
  Receipt Date: 20090206
  Transmission Date: 20090719
  Serious: Yes (Hospitalization)
  Sender: FDA-Public Use
  Company Number: A0760827A

PATIENT
  Age: 77 Year
  Sex: Male
  Weight: 66.5 kg

DRUGS (2)
  1. LAPATINIB [Suspect]
     Indication: GASTRIC CANCER
     Dosage: 1250MG PER DAY
     Route: 048
     Dates: start: 20080923
  2. CAPECITABINE [Suspect]
     Indication: GASTRIC CANCER
     Dosage: 2000MGM2 PER DAY
     Route: 048
     Dates: start: 20081001

REACTIONS (2)
  - ASTHENIA [None]
  - FALL [None]
